FAERS Safety Report 10423504 (Version 1)
Quarter: 2014Q3

REPORT INFORMATION
  Report Type: Report from Study
  Country: CA (occurrence: CA)
  Receive Date: 20140902
  Receipt Date: 20140902
  Transmission Date: 20150326
  Serious: Yes (Hospitalization)
  Sender: FDA-Public Use
  Company Number: CA-VERTEX PHARMACEUTICALS INC-2014-003604

PATIENT
  Age: 49 Year
  Sex: Male

DRUGS (2)
  1. TELAPREVIR [Suspect]
     Active Substance: TELAPREVIR
     Indication: HEPATITIS C
     Dosage: 1125 MG, BID
     Route: 048
     Dates: start: 20140714, end: 20140809
  2. PEGATRON [Suspect]
     Active Substance: PEGINTERFERON ALFA-2B\RIBAVIRIN
     Indication: HEPATITIS C
     Dosage: 150 ?G, UNK
     Route: 065
     Dates: start: 20140714, end: 20140803

REACTIONS (1)
  - Intestinal obstruction [Not Recovered/Not Resolved]

NARRATIVE: CASE EVENT DATE: 20140809
